FAERS Safety Report 9355703 (Version 1)
Quarter: 2013Q2

REPORT INFORMATION
  Report Type: Report from Study
  Country: CA (occurrence: CA)
  Receive Date: 20130619
  Receipt Date: 20130619
  Transmission Date: 20140414
  Serious: Yes (Other)
  Sender: FDA-Public Use
  Company Number: CA-JNJFOC-20130608018

PATIENT
  Age: 58 Year
  Sex: Female
  Weight: 75 kg

DRUGS (3)
  1. REMICADE [Suspect]
     Indication: CROHN^S DISEASE
     Route: 042
     Dates: start: 20130423
  2. REMICADE [Suspect]
     Indication: CROHN^S DISEASE
     Route: 042
     Dates: start: 20110125
  3. FLAGYL [Suspect]
     Indication: VAGINITIS BACTERIAL
     Route: 065
     Dates: start: 201305, end: 201305

REACTIONS (4)
  - Vaginitis bacterial [Not Recovered/Not Resolved]
  - Oesophagitis [Unknown]
  - Intestinal mass [Unknown]
  - Hypersensitivity [Unknown]
